FAERS Safety Report 12530523 (Version 2)
Quarter: 2016Q4

REPORT INFORMATION
  Report Type: Spontaneous
  Country: US (occurrence: US)
  Receive Date: 20160706
  Receipt Date: 20161108
  Transmission Date: 20170207
  Serious: No
  Sender: FDA-Public Use
  Company Number: US-GLAXOSMITHKLINE-US2016094065

PATIENT
  Age: 77 Year
  Sex: Female

DRUGS (2)
  1. VOLTAREN [Suspect]
     Active Substance: DICLOFENAC SODIUM
     Indication: MUSCULOSKELETAL PAIN
     Dosage: UNK
     Dates: start: 20160624
  2. LORAZEPAM. [Suspect]
     Active Substance: LORAZEPAM
     Indication: DYSPNOEA
     Dosage: UNK

REACTIONS (8)
  - Condition aggravated [Recovered/Resolved]
  - Off label use [Unknown]
  - Feeling abnormal [Recovering/Resolving]
  - Drug administered at inappropriate site [Unknown]
  - Incorrect dose administered [Unknown]
  - Somnolence [Recovering/Resolving]
  - Therapeutic response unexpected [Unknown]
  - Dyspnoea [Recovered/Resolved]

NARRATIVE: CASE EVENT DATE: 20160624
